FAERS Safety Report 5168322-7 (Version None)
Quarter: 2006Q4

REPORT INFORMATION
  Report Type: 
  Country: None (occurrence: None)
  Receive Date: 20061201
  Receipt Date: 20061116
  Transmission Date: 20070319
  Serious: Yes (Hospitalization)
  Sender: FDA-Public Use
  Company Number: 8020374

PATIENT
  Age: 39 Year
  Sex: Female

DRUGS (4)
  1. KEPPRA [Suspect]
     Indication: EPILEPSY
     Dosage: 1000 MG 2/D PO
     Route: 048
  2. ZOLOFT [Suspect]
     Indication: FIBROMYALGIA
     Dosage: 50 MG 1/D PO
     Route: 048
     Dates: start: 20060526, end: 20060801
  3. ACETAMINOPHEN [Concomitant]
  4. SYMBICORT [Concomitant]

REACTIONS (5)
  - CONVERSION DISORDER [None]
  - CONVULSIVE THRESHOLD LOWERED [None]
  - IMPAIRED WORK ABILITY [None]
  - INTERVERTEBRAL DISC PROTRUSION [None]
  - QUADRIPLEGIA [None]
